FAERS Safety Report 15451380 (Version 3)
Quarter: 2018Q4

REPORT INFORMATION
  Report Type: Spontaneous
  Country: GR (occurrence: GR)
  Receive Date: 20181001
  Receipt Date: 20181017
  Transmission Date: 20190204
  Serious: Yes (Death)
  Sender: FDA-Public Use
  Company Number: GR-PFIZER INC-2018391792

PATIENT
  Age: 4 Day
  Sex: Female

DRUGS (5)
  1. MEROPENEM. [Suspect]
     Active Substance: MEROPENEM
     Indication: BACILLUS INFECTION
     Dosage: UNK
  2. GENTAMYCIN [Suspect]
     Active Substance: GENTAMICIN
     Dosage: UNK
  3. AMPICILLIN [Suspect]
     Active Substance: AMPICILLIN
     Dosage: UNK
  4. VANCOMYCIN HCL [Suspect]
     Active Substance: VANCOMYCIN HYDROCHLORIDE
     Indication: BACILLUS INFECTION
     Dosage: UNK
  5. CEFTAZIDIME. [Suspect]
     Active Substance: CEFTAZIDIME
     Dosage: UNK

REACTIONS (1)
  - Drug ineffective [Fatal]
